FAERS Safety Report 5335479-4 (Version None)
Quarter: 2007Q2

REPORT INFORMATION
  Report Type: 
  Country: None (occurrence: None)
  Receive Date: 20070322
  Receipt Date: 20061221
  Transmission Date: 20071010
  Serious: No
  Sender: FDA-Public Use
  Company Number: 2006US002971

PATIENT
  Age: 66 Year
  Sex: Female

DRUGS (4)
  1. VESICARE [Suspect]
     Indication: INCONTINENCE
     Dosage: ORAL
     Route: 048
     Dates: start: 20060815, end: 20060817
  2. ENALAPRIL MALEATE [Concomitant]
  3. LABETALOL HYDROCHLORIDE [Concomitant]
  4. CLONIDINE [Concomitant]

REACTIONS (3)
  - HYPERSENSITIVITY [None]
  - PRURITUS [None]
  - RASH [None]
